FAERS Safety Report 10027582 (Version 2)
Quarter: 2014Q1

REPORT INFORMATION
  Report Type: Spontaneous
  Country: IL (occurrence: IL)
  Receive Date: 20140321
  Receipt Date: 20140325
  Transmission Date: 20141002
  Serious: Yes (Hospitalization)
  Sender: FDA-Public Use
  Company Number: IL-PFIZER INC-2014079953

PATIENT
  Sex: Female

DRUGS (1)
  1. ADVIL FORTE [Suspect]
     Dosage: UNK
     Route: 048
     Dates: start: 20140306

REACTIONS (2)
  - Suffocation feeling [Recovered/Resolved]
  - Pharyngeal oedema [Recovered/Resolved]
